FAERS Safety Report 7341163-8 (Version None)
Quarter: 2011Q1

REPORT INFORMATION
  Report Type: 
  Country: None (occurrence: None)
  Receive Date: 20110309
  Receipt Date: 20110302
  Transmission Date: 20110831
  Serious: Yes (Death, Hospitalization)
  Sender: FDA-Public Use
  Company Number: B0678929A

PATIENT
  Sex: Female

DRUGS (2)
  1. FUROSEMIDE [Concomitant]
     Dosage: 20MG PER DAY
     Route: 048
     Dates: start: 20100601, end: 20101007
  2. VALTREX [Suspect]
     Indication: HERPES ZOSTER
     Dosage: 1000MG PER DAY
     Route: 048
     Dates: start: 20100921, end: 20100925

REACTIONS (19)
  - PULMONARY OEDEMA [None]
  - BILIRUBIN CONJUGATED INCREASED [None]
  - IDIOPATHIC THROMBOCYTOPENIC PURPURA [None]
  - FIBRIN DEGRADATION PRODUCTS INCREASED [None]
  - OEDEMA [None]
  - BLOOD BILIRUBIN INCREASED [None]
  - BLOOD POTASSIUM DECREASED [None]
  - PROTEIN TOTAL DECREASED [None]
  - RENAL FAILURE ACUTE [None]
  - THROMBOCYTOPENIA [None]
  - WHITE BLOOD CELL COUNT INCREASED [None]
  - ALTERED STATE OF CONSCIOUSNESS [None]
  - BLOOD UREA INCREASED [None]
  - BLOOD ALBUMIN DECREASED [None]
  - PLATELET COUNT DECREASED [None]
  - MELAENA [None]
  - HAEMOGLOBIN DECREASED [None]
  - BLOOD SODIUM DECREASED [None]
  - BLOOD CREATINE INCREASED [None]
